FAERS Safety Report 5753349-4 (Version None)
Quarter: 2008Q2

REPORT INFORMATION
  Report Type: 
  Country: None (occurrence: None)
  Receive Date: 20080530
  Receipt Date: 20080519
  Transmission Date: 20081010
  Serious: Yes (Hospitalization, Other)
  Sender: FDA-Public Use
  Company Number: US-WYE-H04172008

PATIENT
  Sex: Female
  Weight: 68.1 kg

DRUGS (8)
  1. EFFEXOR XR [Suspect]
     Indication: MENOPAUSAL SYMPTOMS
     Dosage: UNKNOWN
  2. EFFEXOR XR [Suspect]
     Dosage: RESTARTED AT UNKNOWN DOSE
     Dates: end: 20080401
  3. EFFEXOR XR [Suspect]
     Dates: start: 20080401, end: 20080401
  4. EFFEXOR XR [Suspect]
     Dates: start: 20080401, end: 20080401
  5. EFFEXOR XR [Suspect]
     Dates: start: 20080401, end: 20080430
  6. VICODIN [Concomitant]
     Indication: BACK PAIN
     Dosage: UNKNOWN
  7. NEXIUM [Concomitant]
     Indication: GASTROOESOPHAGEAL REFLUX DISEASE
     Dosage: UNKNOWN
  8. ACETYLSALICYLIC ACID SRT [Concomitant]
     Dosage: UNKNOWN

REACTIONS (5)
  - ABNORMAL BEHAVIOUR [None]
  - AMNESIA [None]
  - DRUG WITHDRAWAL SYNDROME [None]
  - INJURY [None]
  - SUICIDE ATTEMPT [None]
